FAERS Safety Report 5580100-3 (Version None)
Quarter: 2007Q4

REPORT INFORMATION
  Report Type: 
  Country: None (occurrence: None)
  Receive Date: 20071228
  Receipt Date: 20071212
  Transmission Date: 20080405
  Serious: Yes (Hospitalization)
  Sender: FDA-Public Use
  Company Number: 2007EU002643

PATIENT
  Age: 27 Year
  Sex: Male
  Weight: 54 kg

DRUGS (6)
  1. TACROLIMUS [Suspect]
     Indication: RENAL TRANSPLANT
     Dosage: 4 MG, /D, ORAL
     Route: 048
     Dates: start: 20070925
  2. CELLCEPT [Concomitant]
  3. PREDNISOLONE [Concomitant]
  4. EGILOK (METOPROLOL TARTRATE) [Concomitant]
  5. ENALAPRIL MALEATE [Concomitant]
  6. VALGANCICLOVIR HCL [Concomitant]

REACTIONS (3)
  - HYPERTENSION [None]
  - IMMUNOSUPPRESSANT DRUG LEVEL INCREASED [None]
  - NEUROLOGICAL SYMPTOM [None]
